FAERS Safety Report 10090020 (Version 1)
Quarter: 2014Q2

REPORT INFORMATION
  Report Type: Spontaneous
  Country: CO (occurrence: CO)
  Receive Date: 20140421
  Receipt Date: 20140421
  Transmission Date: 20141212
  Serious: Yes (Death)
  Sender: FDA-Public Use
  Company Number: CO-ROCHE-1386233

PATIENT
  Age: 38 Year
  Sex: Female

DRUGS (2)
  1. TRASTUZUMAB [Suspect]
     Indication: BREAST CANCER METASTATIC
     Route: 042
  2. CAPECITABINE [Suspect]
     Indication: BREAST CANCER METASTATIC
     Route: 065

REACTIONS (1)
  - Disease progression [Fatal]
